FAERS Safety Report 4596545-4 (Version None)
Quarter: 2005Q1

REPORT INFORMATION
  Report Type: 
  Country: None (occurrence: None)
  Receive Date: 20050228
  Receipt Date: 20050220
  Transmission Date: 20050727
  Serious: Yes (Other)
  Sender: FDA-Public Use
  Company Number: AU-2005-000437

PATIENT
  Age: 28 Year
  Sex: Female

DRUGS (1)
  1. MIRENA [Suspect]
     Indication: CONTRACEPTION
     Dosage: 20  UG/DAY, CONT, INTRA-UTERINE
     Route: 015
     Dates: start: 20040701

REACTIONS (3)
  - BIPOLAR DISORDER [None]
  - DEPRESSED MOOD [None]
  - MOOD SWINGS [None]
